FAERS Safety Report 7462090-1 (Version None)
Quarter: 2011Q2

REPORT INFORMATION
  Report Type: 
  Country: None (occurrence: None)
  Receive Date: 20110506
  Receipt Date: 20091130
  Transmission Date: 20111010
  Serious: Yes (Death, Hospitalization, Other)
  Sender: FDA-Public Use
  Company Number: US-BAYER-200941232NA

PATIENT
  Age: 81 Year
  Sex: Male
  Weight: 88 kg

DRUGS (9)
  1. MILRINONE [Concomitant]
     Dosage: UNK
     Route: 042
     Dates: start: 20041214
  2. HEPARIN [Concomitant]
     Dosage: 7500 U, UNK
     Route: 042
     Dates: start: 20041214
  3. PAVULON [Concomitant]
     Dosage: UNK
     Route: 042
     Dates: start: 20041214
  4. LISINOPRIL [Concomitant]
  5. TRASYLOL [Suspect]
     Indication: CORONARY ARTERY BYPASS
     Dosage: UNK
     Route: 042
     Dates: start: 20041214
  6. ASPIRIN [Concomitant]
  7. VERSED [Concomitant]
     Dosage: UNK
     Route: 042
     Dates: start: 20041214
  8. EPINEPHRINE [Concomitant]
     Dosage: UNK
     Route: 042
     Dates: start: 20041214
  9. HEPARIN [Concomitant]
     Dosage: 1500 UNITS
     Route: 042
     Dates: start: 20041214

REACTIONS (14)
  - RENAL FAILURE [None]
  - UNEVALUABLE EVENT [None]
  - ANXIETY [None]
  - DEATH [None]
  - MULTI-ORGAN FAILURE [None]
  - ANHEDONIA [None]
  - EMOTIONAL DISTRESS [None]
  - FEAR [None]
  - INJURY [None]
  - PAIN [None]
  - MYOCARDIAL INFARCTION [None]
  - RENAL IMPAIRMENT [None]
  - RENAL INJURY [None]
  - STRESS [None]
